FAERS Safety Report 13227908 (Version 2)
Quarter: 2017Q1

REPORT INFORMATION
  Report Type: Spontaneous
  Country: SK (occurrence: SK)
  Receive Date: 20170213
  Receipt Date: 20170223
  Transmission Date: 20170428
  Serious: Yes (Other)
  Sender: FDA-Public Use
  Company Number: SK-GLAXOSMITHKLINE-SK2017GSK019548

PATIENT
  Age: 48 Year
  Sex: Male

DRUGS (2)
  1. SALBUTAMOL [Suspect]
     Active Substance: ALBUTEROL
     Indication: PRODUCT USED FOR UNKNOWN INDICATION
     Dosage: UNK
     Route: 055
     Dates: start: 201501, end: 201509
  2. FLUTICASONE. [Suspect]
     Active Substance: FLUTICASONE
     Indication: ASTHMA
     Dosage: 250 UNK, UNK
     Route: 055
     Dates: start: 201501, end: 201509

REACTIONS (3)
  - Lower respiratory tract infection [Recovered/Resolved]
  - Asthma [Recovered/Resolved]
  - Drug ineffective [Recovered/Resolved]

NARRATIVE: CASE EVENT DATE: 201508
